FAERS Safety Report 8276256-4 (Version None)
Quarter: 2012Q2

REPORT INFORMATION
  Report Type: 
  Country: None (occurrence: None)
  Receive Date: 20120409
  Receipt Date: 20120323
  Transmission Date: 20120825
  Serious: Yes (Other)
  Sender: FDA-Public Use
  Company Number: 7121588

PATIENT
  Age: 65 Year
  Sex: Male

DRUGS (1)
  1. LEVOTHYROXINE SODIUM [Suspect]
     Indication: HYPERTHYROIDISM
     Dosage: 0.5 DF (0.5 DF, 1/2 TABLET)
     Route: 048
     Dates: start: 20110701, end: 20110901

REACTIONS (2)
  - EXOPHTHALMOS [None]
  - DIPLOPIA [None]
